FAERS Safety Report 6536685-3 (Version None)
Quarter: 2010Q1

REPORT INFORMATION
  Report Type: 
  Country: None (occurrence: None)
  Receive Date: 20100113
  Receipt Date: 20100104
  Transmission Date: 20100710
  Serious: Yes (Death)
  Sender: FDA-Public Use
  Company Number: US-PFIZER INC-2010001618

PATIENT
  Age: 41 Year
  Sex: Female

DRUGS (11)
  1. HYDROXYZINE PAMOATE [Suspect]
     Route: 048
  2. VENLAFAXINE [Suspect]
     Route: 048
  3. ACETAMINOPHEN/DIPHENHYDRAMINE [Suspect]
     Route: 048
  4. OXYMORPHONE [Suspect]
     Route: 048
  5. ACETYLSALICYLIC ACID [Suspect]
     Route: 048
  6. QUETIAPINE [Suspect]
     Route: 048
  7. ZOLPIDEM [Suspect]
     Route: 048
  8. CLONAZEPAM [Suspect]
     Route: 048
  9. BUTALBITAL [Suspect]
     Route: 048
  10. CARISOPRODOL [Concomitant]
  11. ACETAMINOPHEN AND HYDROCODONE BITARTRATE [Concomitant]

REACTIONS (2)
  - COMPLETED SUICIDE [None]
  - MULTI-ORGAN FAILURE [None]
